FAERS Safety Report 25878178 (Version 1)
Quarter: 2025Q4

REPORT INFORMATION
  Report Type: Spontaneous
  Country: EU (occurrence: EU)
  Receive Date: 20251003
  Receipt Date: 20251003
  Transmission Date: 20260117
  Serious: Yes (Other)
  Sender: RANBAXY
  Company Number: EU-SUN PHARMACEUTICAL INDUSTRIES INC-2025R1-529645

PATIENT
  Age: 61 Year
  Sex: Male

DRUGS (15)
  1. DOCETAXEL [Suspect]
     Active Substance: DOCETAXEL
     Indication: Prostate cancer
     Dosage: UNK
     Route: 065
     Dates: start: 202004, end: 202008
  2. DOCETAXEL [Suspect]
     Active Substance: DOCETAXEL
     Indication: Metastases to bone
  3. DOCETAXEL [Suspect]
     Active Substance: DOCETAXEL
     Indication: Metastases to lymph nodes
  4. ENZALUTAMIDE [Suspect]
     Active Substance: ENZALUTAMIDE
     Indication: Prostate cancer
     Dosage: 160 MILLIGRAM, DAILY
     Route: 065
     Dates: start: 202110
  5. ENZALUTAMIDE [Suspect]
     Active Substance: ENZALUTAMIDE
     Indication: Metastases to bone
  6. ENZALUTAMIDE [Suspect]
     Active Substance: ENZALUTAMIDE
     Indication: Metastases to lymph nodes
  7. LEUPROLIDE [Suspect]
     Active Substance: LEUPROLIDE
     Indication: Prostate cancer
     Dosage: UNK (11.25 MG/ML EVERY 3 MONTHS)
     Route: 065
     Dates: start: 202004
  8. LEUPROLIDE [Suspect]
     Active Substance: LEUPROLIDE
     Indication: Metastases to bone
  9. LEUPROLIDE [Suspect]
     Active Substance: LEUPROLIDE
     Indication: Metastases to lymph nodes
  10. DENOSUMAB [Suspect]
     Active Substance: DENOSUMAB
     Indication: Prostate cancer
     Dosage: UNK (MONTHLY)
     Route: 065
     Dates: start: 202007
  11. DENOSUMAB [Suspect]
     Active Substance: DENOSUMAB
     Indication: Metastases to bone
  12. DENOSUMAB [Suspect]
     Active Substance: DENOSUMAB
     Indication: Metastases to lymph nodes
  13. TAXOTERE [Suspect]
     Active Substance: DOCETAXEL
     Indication: Prostate cancer
     Dosage: UNK
     Route: 065
     Dates: start: 202004, end: 202008
  14. TAXOTERE [Suspect]
     Active Substance: DOCETAXEL
     Indication: Metastases to bone
  15. TAXOTERE [Suspect]
     Active Substance: DOCETAXEL
     Indication: Metastases to lymph nodes

REACTIONS (1)
  - Hereditary optic atrophy [Unknown]

NARRATIVE: CASE EVENT DATE: 20230801
